FAERS Safety Report 23367828 (Version 2)
Quarter: 2024Q1

REPORT INFORMATION
  Report Type: Spontaneous
  Country: FR (occurrence: FR)
  Receive Date: 20240104
  Receipt Date: 20240110
  Transmission Date: 20240410
  Serious: Yes (Other)
  Sender: FDA-Public Use
  Company Number: FR-CELLTRION INC.-2024FR000069

PATIENT

DRUGS (4)
  1. AVASTIN [Suspect]
     Active Substance: BEVACIZUMAB
     Indication: Metastases to central nervous system
     Dosage: 15 MG/KG, EVERY 3 WEEKS (4 CYCLES)
     Route: 042
     Dates: start: 20230728, end: 20230915
  2. AVASTIN [Suspect]
     Active Substance: BEVACIZUMAB
     Indication: Radiation necrosis
  3. BEVACIZUMAB [Suspect]
     Active Substance: BEVACIZUMAB
     Indication: Metastases to central nervous system
     Dosage: 4 CYCLES
     Route: 065
  4. ALECTINIB [Concomitant]
     Active Substance: ALECTINIB
     Indication: Non-small cell lung cancer
     Dosage: 600 MG EVERY 0.5 DAY

REACTIONS (3)
  - Enterocolitis haemorrhagic [Unknown]
  - Colitis ulcerative [Unknown]
  - Intentional product use issue [Unknown]
